FAERS Safety Report 8780410 (Version 1)
Quarter: 2012Q4

REPORT INFORMATION
  Report Type: Spontaneous
  Country: CA (occurrence: None)
  Receive Date: 20120830
  Receipt Date: 20120830
  Transmission Date: 20130627
  Serious: Yes (Hospitalization, Other)
  Sender: FDA-Public Use
  Company Number: 2009AP004717

PATIENT
  Age: 52 Year
  Sex: Male

DRUGS (9)
  1. QUETIAPINE FUMARATE [Suspect]
     Indication: INSOMNIA
     Dosage: HS
  2. QUETIAPINE FUMARATE [Suspect]
     Indication: OFF LABEL USE
     Dosage: HS
  3. CITALOPRAM [Suspect]
     Indication: ANTIDEPRESSANT THERAPY
  4. CITALOPRAM [Suspect]
     Indication: ANTIDEPRESSANT THERAPY
  5. RISPERIDONE (RISPERIDONE) [Concomitant]
  6. VALPROIC ACID (VALPROIC ACID) [Concomitant]
  7. CLONAZEPAM (CLONAZEPAM) [Concomitant]
  8. ZOPICLONE (ZOPICLONE) [Concomitant]
  9. LAMOTRIGINE (LAMOTRIGINE) [Concomitant]

REACTIONS (9)
  - Neuroleptic malignant syndrome [None]
  - Hallucination, auditory [None]
  - Disorientation [None]
  - Psychotic disorder [None]
  - Dysarthria [None]
  - Abnormal behaviour [None]
  - Hypertonia [None]
  - Off label use [None]
  - Tachycardia [None]
